FAERS Safety Report 9777016 (Version 2)
Quarter: 2014Q1

REPORT INFORMATION
  Report Type: Spontaneous
  Country: IT (occurrence: IT)
  Receive Date: 20131221
  Receipt Date: 20140203
  Transmission Date: 20141002
  Serious: Yes (Hospitalization)
  Sender: FDA-Public Use
  Company Number: IT-ROCHE-1320770

PATIENT
  Age: 70 Year
  Sex: Male

DRUGS (4)
  1. MABTHERA [Suspect]
     Indication: B-CELL LYMPHOMA
     Route: 041
     Dates: start: 20130708, end: 20130920
  2. DOXORUBICIN [Concomitant]
     Route: 041
     Dates: start: 20130708, end: 20130920
  3. ENDOXAN BAXTER [Concomitant]
     Route: 041
     Dates: start: 20130708, end: 20130920
  4. VINCRISTINA [Concomitant]
     Route: 041
     Dates: start: 20130708, end: 20130920

REACTIONS (3)
  - Spinal pain [Recovered/Resolved]
  - Urticaria [Unknown]
  - Chills [Unknown]
